FAERS Safety Report 4317742-9 (Version None)
Quarter: 2004Q1

REPORT INFORMATION
  Report Type: 
  Country: None (occurrence: None)
  Receive Date: 20040315
  Receipt Date: 20040304
  Transmission Date: 20041129
  Serious: Yes (Hospitalization)
  Sender: FDA-Public Use
  Company Number: PHRM2004FR01071

PATIENT
  Age: 90 Year
  Sex: Male

DRUGS (9)
  1. NITROGLYCERIN [Suspect]
     Dosage: 10 MG, QD
     Route: 062
     Dates: start: 20031103
  2. NAFTILUX [Concomitant]
     Dosage: 1 DF, BID
     Route: 048
     Dates: start: 20031103
  3. TANGANIL [Concomitant]
     Dosage: 1 DF, BID
     Route: 048
     Dates: start: 20031103
  4. LORAZEPAM [Concomitant]
     Dosage: 5 MG, QD
     Route: 048
     Dates: start: 20031103
  5. CELEBREX [Concomitant]
     Dosage: 1 DF, BID
     Route: 048
     Dates: start: 20031103
  6. CELIPROLOL [Concomitant]
     Dosage: 200 MG, QD
     Route: 048
  7. ALLOPURINOL [Concomitant]
     Dosage: 100 MG, QD
     Route: 048
  8. CATARSTAT [Concomitant]
     Dosage: 2 DF DAILY
  9. MOPRAL [Concomitant]
     Dosage: 20 MG, QD
     Route: 048

REACTIONS (9)
  - ANAEMIA [None]
  - DRUG INTERACTION [None]
  - FALL [None]
  - FEMUR FRACTURE [None]
  - HYPERKALAEMIA [None]
  - LEUKOCYTOSIS [None]
  - LOSS OF CONSCIOUSNESS [None]
  - MALAISE [None]
  - ORTHOSTATIC HYPOTENSION [None]
